FAERS Safety Report 7287700-3 (Version None)
Quarter: 2011Q1

REPORT INFORMATION
  Report Type: 
  Country: None (occurrence: None)
  Receive Date: 20110208
  Receipt Date: 20110208
  Transmission Date: 20110831
  Serious: Yes (Hospitalization)
  Sender: FDA-Public Use
  Company Number: None

PATIENT
  Sex: Female
  Weight: 84 kg

DRUGS (15)
  1. ZOCOR [Concomitant]
  2. PROMACTA [Suspect]
     Indication: IDIOPATHIC THROMBOCYTOPENIC PURPURA
     Dosage: 25MMG DAILY PO
     Route: 048
     Dates: start: 20101222, end: 20110131
  3. NORCO [Concomitant]
  4. LASIX [Concomitant]
  5. HYDROCHLOROTHIAZIDE [Concomitant]
  6. GLUCOSAMINE [Concomitant]
  7. ZESTRIL [Concomitant]
  8. ULTRAM [Concomitant]
  9. AMARYL [Concomitant]
  10. PYRIDOXINE [Concomitant]
  11. BROVANA [Concomitant]
  12. METOPROLOL SUCCINATE EXTENDED RELEASE [Concomitant]
  13. BUDESONIDE [Concomitant]
  14. METFORMIN [Concomitant]
  15. VITAMIN B-12 [Concomitant]

REACTIONS (2)
  - DEEP VEIN THROMBOSIS [None]
  - PLATELET COUNT INCREASED [None]
